FAERS Safety Report 21902310 (Version 1)
Quarter: 2023Q1

REPORT INFORMATION
  Report Type: Spontaneous
  Country: DE (occurrence: DE)
  Receive Date: 20230124
  Receipt Date: 20230124
  Transmission Date: 20230418
  Serious: Yes (Other)
  Sender: FDA-Public Use
  Company Number: DE-ALKEM LABORATORIES LIMITED-DE-ALKEM-2022-14309

PATIENT
  Age: 72 Year
  Sex: Male
  Weight: 73 kg

DRUGS (2)
  1. METFORMIN HYDROCHLORIDE\SITAGLIPTIN [Interacting]
     Active Substance: METFORMIN HYDROCHLORIDE\SITAGLIPTIN
     Indication: Product used for unknown indication
     Dosage: UNK, QD (FILM-COATED TABLET)
     Route: 048
     Dates: start: 2020
  2. LACOSAMIDE [Interacting]
     Active Substance: LACOSAMIDE
     Indication: Epilepsy
     Dosage: 200 MILLIGRAM, QD (EVERY 1 DAY)
     Route: 065
     Dates: start: 20221123, end: 20221215

REACTIONS (3)
  - Epilepsy [Unknown]
  - Blood glucose increased [Recovering/Resolving]
  - Drug interaction [Unknown]

NARRATIVE: CASE EVENT DATE: 20221215
